FAERS Safety Report 5490155-2 (Version None)
Quarter: 2007Q4

REPORT INFORMATION
  Report Type: 
  Country: None (occurrence: None)
  Receive Date: 20071018
  Receipt Date: 20071017
  Transmission Date: 20080405
  Serious: No
  Sender: FDA-Public Use
  Company Number: US-BOEHRINGER INGELHEIM PHARMACEUTICALS, INC.-2006-BP-08736BP

PATIENT
  Sex: Male

DRUGS (41)
  1. MIRAPEX [Suspect]
     Indication: PARKINSON'S DISEASE
     Route: 048
     Dates: start: 20011210, end: 20050906
  2. REQUIP [Concomitant]
     Indication: PARKINSON'S DISEASE
     Dates: start: 20040101
  3. AMANTADINE HCL [Concomitant]
     Indication: PARKINSON'S DISEASE
     Dates: start: 20020601, end: 20040128
  4. AMANTADINE HCL [Concomitant]
     Dates: start: 20040301, end: 20050401
  5. FLUOXETINE [Concomitant]
     Indication: DEPRESSION
     Dates: start: 20020101, end: 20031101
  6. SERZONE [Concomitant]
     Indication: DEPRESSION
     Dates: start: 19991101
  7. SERZONE [Concomitant]
     Dates: start: 20040201
  8. ACYCLOVIR [Concomitant]
     Indication: GENITAL HERPES
     Dates: start: 19980101
  9. IBUPROFEN [Concomitant]
     Indication: MUSCULOSKELETAL PAIN
  10. IBUPROFEN [Concomitant]
     Indication: ROTATOR CUFF SYNDROME
  11. IBUPROFEN [Concomitant]
     Indication: OSTEOARTHRITIS
  12. COENZYME Q10 [Concomitant]
     Dates: start: 20031118
  13. CLARITIN [Concomitant]
     Indication: PEYRONIE'S DISEASE
     Dates: start: 20021101, end: 20031001
  14. COLCHICINE [Concomitant]
     Indication: PEYRONIE'S DISEASE
     Dates: start: 20021101, end: 20031003
  15. VITAMIN E [Concomitant]
     Indication: PEYRONIE'S DISEASE
     Dates: start: 20021101
  16. VERAPAMIL [Concomitant]
     Indication: PEYRONIE'S DISEASE
     Dates: start: 20021101
  17. CLARINEX [Concomitant]
     Indication: POSTNASAL DRIP
     Dates: start: 20020501
  18. VITAMIN CAP [Concomitant]
     Dates: start: 20010116
  19. ZOLOFT [Concomitant]
     Dates: start: 20031101, end: 20031201
  20. WELLBUTRIN SR [Concomitant]
     Dates: start: 20031222, end: 20040201
  21. REQUIP [Concomitant]
     Dates: start: 20040101
  22. ARICEPT [Concomitant]
     Indication: DEMENTIA
     Dates: start: 20040917
  23. ARICEPT [Concomitant]
     Indication: COGNITIVE DISORDER
  24. AMBIEN [Concomitant]
     Indication: INSOMNIA
     Dates: start: 20041101
  25. CARB/LEVO [Concomitant]
     Dates: start: 20050414
  26. DETROL LA [Concomitant]
     Dates: start: 20050605
  27. SEROQUEL [Concomitant]
     Indication: INSOMNIA
     Dates: start: 20050601
  28. SEROQUEL [Concomitant]
     Indication: RESTLESSNESS
  29. AZILECT [Concomitant]
     Dates: start: 20070102
  30. SAW PALMETTO [Concomitant]
  31. BETA KERATIN [Concomitant]
  32. ASCORBIC ACID [Concomitant]
  33. ELDEPRYL [Concomitant]
  34. NAMENDA [Concomitant]
     Indication: COGNITIVE DISORDER
     Dates: start: 20050301
  35. SINEMET [Concomitant]
     Dates: start: 20010501
  36. ATOMOXETINE [Concomitant]
     Indication: PARKINSON'S DISEASE
     Dates: start: 20060301
  37. ATOMOXETINE [Concomitant]
     Indication: COGNITIVE DISORDER
  38. ASPIRIN [Concomitant]
     Dates: start: 20060101
  39. MULTI-MINERAL SUPPLEMENT [Concomitant]
  40. STRATTERA [Concomitant]
     Dates: start: 20060501
  41. ULTRACET [Concomitant]
     Indication: PAIN

REACTIONS (11)
  - COGNITIVE DISORDER [None]
  - EMOTIONAL DISTRESS [None]
  - HALLUCINATION, OLFACTORY [None]
  - HYPERPHAGIA [None]
  - HYPERSEXUALITY [None]
  - IMPULSE-CONTROL DISORDER [None]
  - INJURY [None]
  - MAJOR DEPRESSION [None]
  - PATHOLOGICAL GAMBLING [None]
  - PSYCHOTIC DISORDER [None]
  - WEIGHT INCREASED [None]
